FAERS Safety Report 9903128 (Version 1)
Quarter: 2014Q1

REPORT INFORMATION
  Report Type: Spontaneous
  Country: US (occurrence: US)
  Receive Date: 20140217
  Receipt Date: 20140217
  Transmission Date: 20141002
  Serious: No
  Sender: FDA-Public Use
  Company Number: US-BAXTER-2014BAX005901

PATIENT
  Sex: Male

DRUGS (2)
  1. DIANEAL LOW CALCIUM [Suspect]
     Indication: RENAL FAILURE CHRONIC
     Route: 033
     Dates: end: 20140131
  2. DIANEAL LOW CALCIUM (ULTRABAG) [Suspect]
     Indication: RENAL FAILURE CHRONIC
     Route: 033
     Dates: end: 20140131

REACTIONS (6)
  - Peritoneal dialysis complication [Recovering/Resolving]
  - Dehydration [Recovering/Resolving]
  - Post procedural complication [Recovering/Resolving]
  - Wound secretion [Recovering/Resolving]
  - Azotaemia [Recovering/Resolving]
  - Vomiting [Recovering/Resolving]
